FAERS Safety Report 22331584 (Version 1)
Quarter: 2023Q2

REPORT INFORMATION
  Report Type: Spontaneous
  Country: GB (occurrence: GB)
  Receive Date: 20230517
  Receipt Date: 20230517
  Transmission Date: 20230722
  Serious: Yes (Hospitalization)
  Sender: FDA-Public Use
  Company Number: GB-002147023-NVSC2023GB108764

PATIENT
  Sex: Female

DRUGS (1)
  1. ADAKVEO [Suspect]
     Active Substance: CRIZANLIZUMAB-TMCA
     Indication: Product used for unknown indication
     Dosage: UNK
     Route: 065
     Dates: start: 20230502, end: 20230502

REACTIONS (7)
  - Coma scale abnormal [Unknown]
  - Confusional state [Unknown]
  - Asthenia [Unknown]
  - Blood pressure decreased [Unknown]
  - C-reactive protein increased [Unknown]
  - Dysarthria [Unknown]
  - Somnolence [Unknown]

NARRATIVE: CASE EVENT DATE: 20230503
